FAERS Safety Report 8822573 (Version 1)
Quarter: 2012Q4

REPORT INFORMATION
  Report Type: Report from Study
  Country: JP (occurrence: JP)
  Receive Date: 20121003
  Receipt Date: 20121003
  Transmission Date: 20130627
  Serious: Yes (Death)
  Sender: FDA-Public Use
  Company Number: JP-SANOFI-AVENTIS-2012SA071817

PATIENT
  Age: 77 Year
  Sex: Male
  Weight: 64 kg

DRUGS (14)
  1. CLOPIDOGREL BISULFATE [Suspect]
     Indication: STEMI
     Route: 065
     Dates: start: 20110913, end: 20110913
  2. CLOPIDOGREL BISULFATE [Suspect]
     Indication: STEMI
     Route: 065
     Dates: start: 20110914, end: 20110916
  3. ASPIRIN [Concomitant]
     Dates: start: 20110913, end: 20110913
  4. BAYASPIRIN [Concomitant]
     Dates: start: 20110914, end: 20110916
  5. NAFAMOSTAT MESILATE [Concomitant]
     Dates: start: 20110918, end: 20120920
  6. ARTIST [Concomitant]
     Dates: start: 20110914, end: 20110914
  7. COVERSYL /FRA/ [Concomitant]
     Dates: start: 20110914, end: 20110916
  8. TAKEPRON OD [Concomitant]
     Dates: start: 20110913, end: 20110916
  9. MAINTATE [Concomitant]
     Dates: start: 20110914, end: 20110916
  10. LENDORMIN [Concomitant]
     Dates: start: 20110915, end: 20110915
  11. THEODUR [Concomitant]
     Dates: start: 20110913, end: 20110913
  12. MEQUITAZINE [Concomitant]
     Dates: start: 20110913, end: 20110913
  13. BUDESONIDE/FORMOTEROL [Concomitant]
     Dates: start: 20110913, end: 20110913
  14. NITROPEN [Concomitant]
     Dates: start: 20110913, end: 20110913

REACTIONS (2)
  - Myocardial rupture [Fatal]
  - Haemorrhage [Fatal]
